FAERS Safety Report 12989980 (Version 1)
Quarter: 2016Q4

REPORT INFORMATION
  Report Type: Spontaneous
  Country: US (occurrence: US)
  Receive Date: 20161130
  Receipt Date: 20161130
  Transmission Date: 20170207
  Serious: Yes (Hospitalization)
  Sender: FDA-Public Use
  Company Number: None

PATIENT
  Age: 39 Year
  Sex: Female
  Weight: 84.2 kg

DRUGS (7)
  1. PEMBROLIZUMAB, 200 MG Q3W [Suspect]
     Active Substance: PEMBROLIZUMAB
     Indication: METASTASES TO CENTRAL NERVOUS SYSTEM
     Route: 042
     Dates: start: 20161026, end: 20161123
  2. DILAUDID [Concomitant]
     Active Substance: HYDROMORPHONE HYDROCHLORIDE
  3. PEMBROLIZUMAB, 200 MG Q3W [Suspect]
     Active Substance: PEMBROLIZUMAB
     Indication: METASTASES TO MENINGES
     Route: 042
     Dates: start: 20161026, end: 20161123
  4. ZOFRAN [Concomitant]
     Active Substance: ONDANSETRON HYDROCHLORIDE
  5. DEXAMETHASONE. [Concomitant]
     Active Substance: DEXAMETHASONE
  6. ACETAMINOPHEN. [Concomitant]
     Active Substance: ACETAMINOPHEN
  7. MORPHINE [Concomitant]
     Active Substance: MORPHINE

REACTIONS (8)
  - Headache [None]
  - Asthenia [None]
  - Syncope [None]
  - Nausea [None]
  - Fall [None]
  - Vomiting [None]
  - Confusional state [None]
  - Somnolence [None]

NARRATIVE: CASE EVENT DATE: 20161128
